FAERS Safety Report 10037825 (Version 4)
Quarter: 2014Q2

REPORT INFORMATION
  Report Type: Spontaneous
  Country: US (occurrence: US)
  Receive Date: 20140326
  Receipt Date: 20140512
  Transmission Date: 20141212
  Serious: No
  Sender: FDA-Public Use
  Company Number: US-PFIZER INC-2014086243

PATIENT
  Age: 78 Year
  Sex: Male

DRUGS (7)
  1. ALPRAZOLAM [Suspect]
     Indication: ANXIETY
     Dosage: 0.5 MG, 3X/DAY
     Route: 048
     Dates: start: 2010
  2. PRONUTRIENTS COQ10 [Interacting]
     Dosage: UNK
  3. AMLODIPINE [Concomitant]
     Dosage: UNK
  4. COUMADINE [Concomitant]
     Dosage: UNK
  5. PROPAFENONE [Concomitant]
     Dosage: UNK
  6. TAMSULOSIN [Concomitant]
     Dosage: UNK
  7. BYSTOLIC [Concomitant]
     Dosage: UNK

REACTIONS (6)
  - Drug ineffective [Unknown]
  - Drug interaction [Unknown]
  - Paraesthesia [Unknown]
  - Product shape issue [Unknown]
  - Product colour issue [Unknown]
  - Nervousness [Unknown]
